FAERS Safety Report 13888929 (Version 2)
Quarter: 2017Q3

REPORT INFORMATION
  Report Type: Spontaneous
  Country: US (occurrence: US)
  Receive Date: 20170821
  Receipt Date: 20170828
  Transmission Date: 20171127
  Serious: Yes (Other)
  Sender: FDA-Public Use
  Company Number: US-BEH-2017082873

PATIENT
  Sex: Female
  Weight: 54.42 kg

DRUGS (37)
  1. ALENDRONATE [Concomitant]
     Active Substance: ALENDRONATE SODIUM
  2. FOLIC ACID. [Concomitant]
     Active Substance: FOLIC ACID
  3. ZEMAIRA [Suspect]
     Active Substance: .ALPHA.1-PROTEINASE INHIBITOR HUMAN
     Indication: ALPHA-1 ANTI-TRYPSIN DEFICIENCY
     Dosage: 60 MG/KG, QW
     Route: 042
     Dates: start: 20111214
  4. ZEMAIRA [Suspect]
     Active Substance: .ALPHA.1-PROTEINASE INHIBITOR HUMAN
     Dosage: UNK
     Route: 042
  5. ESCITALOPRAM [Concomitant]
     Active Substance: ESCITALOPRAM OXALATE
  6. SYMBICORT [Concomitant]
     Active Substance: BUDESONIDE\FORMOTEROL FUMARATE DIHYDRATE
  7. XALATAN [Concomitant]
     Active Substance: LATANOPROST
  8. ZEMAIRA [Suspect]
     Active Substance: .ALPHA.1-PROTEINASE INHIBITOR HUMAN
     Dosage: 60 MG/KG, QW
     Route: 042
     Dates: start: 20120130
  9. ACETAMINOPHEN W/HYDROCODONE [Concomitant]
     Active Substance: ACETAMINOPHEN\HYDROCODONE
  10. TRAMADOL. [Concomitant]
     Active Substance: TRAMADOL
  11. PREDNISONE. [Concomitant]
     Active Substance: PREDNISONE
  12. OXYGEN. [Concomitant]
     Active Substance: OXYGEN
  13. SODIUM CHLORIDE. [Concomitant]
     Active Substance: SODIUM CHLORIDE
  14. LISINOPRIL AND HYDROCHLOROTHIAZIDE [Concomitant]
     Active Substance: HYDROCHLOROTHIAZIDE\LISINOPRIL
  15. AMLODIPINE [Concomitant]
     Active Substance: AMLODIPINE BESYLATE
  16. SYNTHROID [Concomitant]
     Active Substance: LEVOTHYROXINE SODIUM
  17. LORAZEPAM. [Concomitant]
     Active Substance: LORAZEPAM
  18. LMX                                /00033401/ [Concomitant]
  19. VENTOLIN [Concomitant]
     Active Substance: ALBUTEROL SULFATE
  20. SPIRIVA [Concomitant]
     Active Substance: TIOTROPIUM BROMIDE MONOHYDRATE
  21. FERROUS SULFATE. [Concomitant]
     Active Substance: FERROUS SULFATE
  22. NITROGLYCERIN. [Concomitant]
     Active Substance: NITROGLYCERIN
  23. PROAIR HFA [Concomitant]
     Active Substance: ALBUTEROL SULFATE
  24. DIPHENHYDRAMINE. [Concomitant]
     Active Substance: DIPHENHYDRAMINE
  25. GLIPIZIDE. [Concomitant]
     Active Substance: GLIPIZIDE
  26. THEOPHYLLINE [Concomitant]
     Active Substance: THEOPHYLLINE ANHYDROUS
  27. VITAMIN D3 [Concomitant]
     Active Substance: CHOLECALCIFEROL
  28. SIMPONI [Concomitant]
     Active Substance: GOLIMUMAB
  29. LIDOCAINE/PRILOCAINE [Concomitant]
     Active Substance: LIDOCAINE\PRILOCAINE
  30. ASPIRIN. [Concomitant]
     Active Substance: ASPIRIN
  31. SINGULAIR [Concomitant]
     Active Substance: MONTELUKAST SODIUM
  32. METHOTREXATE. [Concomitant]
     Active Substance: METHOTREXATE
  33. ALBUTEROL                          /00139501/ [Concomitant]
     Active Substance: ALBUTEROL
  34. PROBIOTIC                          /06395501/ [Concomitant]
     Active Substance: BIFIDOBACTERIUM ANIMALIS LACTIS
  35. EPINEPHRINE. [Concomitant]
     Active Substance: EPINEPHRINE
  36. HEPARIN [Concomitant]
     Active Substance: HEPARIN SODIUM
  37. VITAMIN B12 [Concomitant]
     Active Substance: CYANOCOBALAMIN

REACTIONS (1)
  - Lung carcinoma cell type unspecified stage IV [Unknown]
